FAERS Safety Report 22149849 (Version 2)
Quarter: 2023Q2

REPORT INFORMATION
  Report Type: Report from Study
  Country: KR (occurrence: KR)
  Receive Date: 20230329
  Receipt Date: 20230417
  Transmission Date: 20230721
  Serious: Yes (Hospitalization)
  Sender: FDA-Public Use
  Company Number: KR-CELLTRION INC.-2023KR006321

PATIENT

DRUGS (67)
  1. INFLIXIMAB-DYYB [Suspect]
     Active Substance: INFLIXIMAB-DYYB
     Indication: Ankylosing spondylitis
     Dosage: 120 MG, EVERY 2WEEKS
     Route: 058
     Dates: start: 20221028, end: 20221028
  2. INFLIXIMAB-DYYB [Suspect]
     Active Substance: INFLIXIMAB-DYYB
     Dosage: 120 MG, EVERY 2WEEKS
     Route: 058
     Dates: start: 20221111, end: 20221111
  3. INFLIXIMAB-DYYB [Suspect]
     Active Substance: INFLIXIMAB-DYYB
     Dosage: 120 MG, EVERY 2WEEKS
     Route: 058
     Dates: start: 20221125, end: 20221125
  4. INFLIXIMAB-DYYB [Suspect]
     Active Substance: INFLIXIMAB-DYYB
     Dosage: 120 MG, EVERY 2WEEKS
     Route: 058
     Dates: start: 20221209, end: 20221209
  5. INFLIXIMAB-DYYB [Suspect]
     Active Substance: INFLIXIMAB-DYYB
     Dosage: 120 MG, EVERY 2WEEKS
     Route: 058
     Dates: start: 20221223, end: 20221223
  6. INFLIXIMAB-DYYB [Suspect]
     Active Substance: INFLIXIMAB-DYYB
     Dosage: 120 MG, EVERY 2WEEKS
     Route: 058
     Dates: start: 20230106, end: 20230106
  7. CELECOXIB [Concomitant]
     Active Substance: CELECOXIB
     Indication: Ankylosing spondylitis
     Dosage: UNK
     Route: 048
     Dates: start: 20200928
  8. CALCIUM CARBONATE\CHOLECALCIFEROL [Concomitant]
     Active Substance: CALCIUM CARBONATE\CHOLECALCIFEROL
     Indication: Osteoporosis
     Dosage: UNK
     Route: 048
     Dates: start: 20201207
  9. ACETAMINOPHEN\TRAMADOL [Concomitant]
     Active Substance: ACETAMINOPHEN\TRAMADOL
     Indication: Ankylosing spondylitis
     Dosage: UNK
     Route: 048
     Dates: start: 20220819
  10. LIMAPROST ALFADEX [LIMAPROST] [Concomitant]
     Indication: Ankylosing spondylitis
     Dosage: UNK
     Route: 048
     Dates: start: 20211029
  11. PREGABALIN [Concomitant]
     Active Substance: PREGABALIN
     Indication: Ankylosing spondylitis
     Dosage: UNK
     Route: 048
     Dates: start: 20221028
  12. RABEPRAZOLE SODIUM [Concomitant]
     Active Substance: RABEPRAZOLE SODIUM
     Indication: Gastrooesophageal reflux disease
     Dosage: UNK
     Route: 048
     Dates: start: 20200928
  13. URSODIOL [Concomitant]
     Active Substance: URSODIOL
     Indication: Alcoholic liver disease
     Dosage: UNK
     Route: 048
     Dates: start: 20200928
  14. AMBROXOL ACEFYLLINATE [Concomitant]
     Active Substance: AMBROXOL ACEFYLLINATE
     Indication: Chronic obstructive pulmonary disease
     Dosage: UNK
     Route: 048
     Dates: start: 20211027
  15. FLUTICASONE FUROATE\UMECLIDINIUM BROMIDE\VILANTEROL TRIFENATATE [Concomitant]
     Active Substance: FLUTICASONE FUROATE\UMECLIDINIUM BROMIDE\VILANTEROL TRIFENATATE
     Indication: Chronic obstructive pulmonary disease
     Dosage: UNK
     Dates: start: 20220419
  16. TERBINAFINE HYDROCHLORIDE [Concomitant]
     Active Substance: TERBINAFINE HYDROCHLORIDE
     Indication: Onychomycosis
     Dosage: UNK
     Route: 048
     Dates: start: 20220819
  17. FINASTERIDE [Concomitant]
     Active Substance: FINASTERIDE
     Indication: Alopecia
     Dosage: UNK
     Route: 048
     Dates: start: 20220916
  18. MIRABEGRON [Concomitant]
     Active Substance: MIRABEGRON
     Indication: Benign prostatic hyperplasia
     Dosage: UNK
     Route: 048
     Dates: start: 20210630, end: 20221129
  19. MIRABEGRON [Concomitant]
     Active Substance: MIRABEGRON
     Dosage: UNK
     Route: 048
     Dates: start: 20230227
  20. ALFUZOSIN HYDROCHLORIDE [Concomitant]
     Active Substance: ALFUZOSIN HYDROCHLORIDE
     Indication: Dysuria
     Dosage: UNK
     Route: 048
     Dates: start: 20221208, end: 20221208
  21. ENTECAVIR [Concomitant]
     Active Substance: ENTECAVIR
     Indication: Hepatitis B
     Dosage: UNK
     Route: 048
     Dates: start: 20210702
  22. MINOXIDIL [Concomitant]
     Active Substance: MINOXIDIL
     Indication: Alopecia
     Dosage: UNK
     Route: 061
     Dates: start: 20220916
  23. TRIAMCINOLONE ACETONIDE [Concomitant]
     Active Substance: TRIAMCINOLONE ACETONIDE
     Indication: Arthralgia
     Dosage: UNK
     Route: 014
     Dates: start: 20221223, end: 20221223
  24. ALFUZOSIN HYDROCHLORIDE [Concomitant]
     Active Substance: ALFUZOSIN HYDROCHLORIDE
     Indication: Dysuria
     Dosage: UNK
     Route: 048
     Dates: start: 20221208, end: 20221208
  25. BETHANECHOL CHLORIDE [Concomitant]
     Active Substance: BETHANECHOL CHLORIDE
     Indication: Dysuria
     Dosage: UNK
     Route: 048
     Dates: start: 20221208, end: 20221209
  26. BETHANECHOL CHLORIDE [Concomitant]
     Active Substance: BETHANECHOL CHLORIDE
     Indication: Prophylaxis
     Dosage: UNK
     Route: 048
     Dates: start: 20220310, end: 20221220
  27. EZETIMIBE\ROSUVASTATIN CALCIUM [Concomitant]
     Active Substance: EZETIMIBE\ROSUVASTATIN CALCIUM
     Indication: Dyslipidaemia
     Dosage: UNK
     Route: 048
     Dates: start: 2021
  28. TELMISARTAN [Concomitant]
     Active Substance: TELMISARTAN
     Indication: Hypertension
     Dosage: UNK
     Route: 048
     Dates: start: 2021
  29. TELMISARTAN [Concomitant]
     Active Substance: TELMISARTAN
     Indication: Hypertension
     Dosage: UNK
     Route: 048
     Dates: start: 20230124, end: 20230202
  30. LEVOSULPIRIDE [Concomitant]
     Active Substance: LEVOSULPIRIDE
     Indication: Abdominal discomfort
     Dosage: UNK
     Route: 048
     Dates: start: 20221208, end: 20221223
  31. LEVOSULPIRIDE [Concomitant]
     Active Substance: LEVOSULPIRIDE
     Indication: Prostate cancer
     Dosage: UNK
     Route: 048
     Dates: start: 20230131, end: 20230203
  32. LEVOSULPIRIDE [Concomitant]
     Active Substance: LEVOSULPIRIDE
     Dosage: UNK
     Route: 048
     Dates: start: 20230204, end: 20230207
  33. TRAMADOL HYDROCHLORIDE [Concomitant]
     Active Substance: TRAMADOL HYDROCHLORIDE
     Indication: Pain prophylaxis
     Dosage: UNK
     Route: 030
     Dates: start: 20221208, end: 20221208
  34. TRAMADOL HYDROCHLORIDE [Concomitant]
     Active Substance: TRAMADOL HYDROCHLORIDE
     Dosage: UNK
     Route: 042
     Dates: start: 20230126, end: 20230128
  35. CIPROFLOXACIN [Concomitant]
     Active Substance: CIPROFLOXACIN
     Indication: Inflammation
     Dosage: UNK
     Route: 042
     Dates: start: 20221208, end: 20221208
  36. CIPROFLOXACIN [Concomitant]
     Active Substance: CIPROFLOXACIN
     Indication: Prophylaxis
  37. CIPROFLOXACIN HYDROCHLORIDE [Concomitant]
     Active Substance: CIPROFLOXACIN HYDROCHLORIDE
     Indication: Inflammation
     Dosage: UNK
     Route: 048
     Dates: start: 20221208, end: 20221213
  38. CIPROFLOXACIN HYDROCHLORIDE [Concomitant]
     Active Substance: CIPROFLOXACIN HYDROCHLORIDE
     Indication: Prophylaxis
  39. GENTAMICIN SULFATE [Concomitant]
     Active Substance: GENTAMICIN SULFATE
     Indication: Inflammation
     Dosage: UNK
     Route: 042
     Dates: start: 20221208, end: 20221208
  40. GENTAMICIN SULFATE [Concomitant]
     Active Substance: GENTAMICIN SULFATE
     Indication: Prophylaxis
  41. HEPARIN SODIUM [Concomitant]
     Active Substance: HEPARIN SODIUM
     Indication: Prostate cancer
     Dosage: UNK
     Route: 042
     Dates: start: 20230126, end: 20230126
  42. PROPOFOL [Concomitant]
     Active Substance: PROPOFOL
     Indication: Prostate cancer
     Dosage: UNK
     Route: 042
     Dates: start: 20230126, end: 20230126
  43. ROPIVACAINE HYDROCHLORIDE [Concomitant]
     Active Substance: ROPIVACAINE HYDROCHLORIDE
     Indication: Prostate cancer
     Dosage: UNK
     Route: 042
     Dates: start: 20230126, end: 20230126
  44. AMBROXOL HYDROCHLORIDE [Concomitant]
     Active Substance: AMBROXOL HYDROCHLORIDE
     Indication: Prostate cancer
     Dosage: UNK
     Route: 042
     Dates: start: 20230126, end: 20230126
  45. EPHEDRINE HYDROCHLORIDE [Concomitant]
     Active Substance: EPHEDRINE HYDROCHLORIDE
     Indication: Prostate cancer
     Dosage: UNK
     Route: 042
     Dates: start: 20230126, end: 20230126
  46. ENOXAPARIN SODIUM [Concomitant]
     Active Substance: ENOXAPARIN SODIUM
     Indication: Prostate cancer
     Dosage: UNK
     Route: 042
     Dates: start: 20230126, end: 20230126
  47. FAMOTIDINE [Concomitant]
     Active Substance: FAMOTIDINE
     Indication: Prostate cancer
     Dosage: UNK
     Route: 042
     Dates: start: 20230125, end: 20230130
  48. FUROSEMIDE [Concomitant]
     Active Substance: FUROSEMIDE
     Indication: Prostate cancer
     Dosage: UNK
     Route: 042
     Dates: start: 20230129, end: 20230129
  49. GLYCOPYRROLATE [Concomitant]
     Active Substance: GLYCOPYRROLATE
     Indication: Prostate cancer
     Dosage: UNK
     Route: 042
     Dates: start: 20230126, end: 20230126
  50. DEXAMETHASONE SODIUM PHOSPHATE [Concomitant]
     Active Substance: DEXAMETHASONE SODIUM PHOSPHATE
     Indication: Prostate cancer
     Dosage: UNK
     Dates: start: 20230126, end: 20230126
  51. REMIFENTANIL HYDROCHLORIDE [Concomitant]
     Active Substance: REMIFENTANIL HYDROCHLORIDE
     Indication: Prostate cancer
     Dosage: UNK
     Route: 042
     Dates: start: 20230126, end: 20230126
  52. FENTANYL CITRATE [Concomitant]
     Active Substance: FENTANYL CITRATE
     Indication: Prostate cancer
     Dosage: UNK
     Route: 042
     Dates: start: 20230126, end: 20230126
  53. ALBUTEROL SULFATE [Concomitant]
     Active Substance: ALBUTEROL SULFATE
     Indication: Prostate cancer
     Dosage: UNK
     Dates: start: 20230126, end: 20230203
  54. ONDANSETRON HYDROCHLORIDE [Concomitant]
     Active Substance: ONDANSETRON HYDROCHLORIDE
     Indication: Prostate cancer
     Dosage: UNK
     Route: 042
     Dates: start: 20230126, end: 20230126
  55. PALONOSETRON HYDROCHLORIDE [Concomitant]
     Active Substance: PALONOSETRON HYDROCHLORIDE
     Indication: Prostate cancer
     Dosage: UNK
     Route: 042
     Dates: start: 20230127, end: 20230129
  56. PALONOSETRON HYDROCHLORIDE [Concomitant]
     Active Substance: PALONOSETRON HYDROCHLORIDE
     Indication: Prostate cancer
     Dosage: UNK
     Route: 042
     Dates: start: 20230126, end: 20230126
  57. PHENYLEPHRINE HYDROCHLORIDE [Concomitant]
     Active Substance: PHENYLEPHRINE HYDROCHLORIDE
     Indication: Prostate cancer
     Dosage: UNK
     Route: 042
     Dates: start: 20230126, end: 20230126
  58. PROPACETAMOL HYDROCHLORIDE [Concomitant]
     Active Substance: PROPACETAMOL HYDROCHLORIDE
     Indication: Prostate cancer
     Dosage: UNK
     Route: 042
     Dates: start: 20230126, end: 20230126
  59. ROCURONIUM BROMIDE [Concomitant]
     Active Substance: ROCURONIUM BROMIDE
     Indication: Prostate cancer
     Dosage: UNK
     Route: 042
     Dates: start: 20230126, end: 20230126
  60. RAMOSETRON HYDROCHLORIDE [Concomitant]
     Active Substance: RAMOSETRON HYDROCHLORIDE
     Indication: Prostate cancer
     Dosage: UNK
     Route: 042
     Dates: start: 20230126, end: 20230126
  61. CEFAZEDONE [Concomitant]
     Active Substance: CEFAZEDONE
     Indication: Prostate cancer
     Dosage: UNK
     Route: 042
     Dates: start: 20230126, end: 20230130
  62. CEFPODOXIME PROXETIL [Concomitant]
     Active Substance: CEFPODOXIME PROXETIL
     Indication: Prostate cancer
     Dosage: UNK
     Route: 048
     Dates: start: 20230131, end: 20230203
  63. CEFPODOXIME PROXETIL [Concomitant]
     Active Substance: CEFPODOXIME PROXETIL
     Indication: Prophylaxis
     Dosage: UNK
     Route: 048
     Dates: start: 20230204, end: 20230207
  64. CEFPODOXIME PROXETIL [Concomitant]
     Active Substance: CEFPODOXIME PROXETIL
     Indication: Inflammation
  65. SUGAMMADEX SODIUM [Concomitant]
     Active Substance: SUGAMMADEX SODIUM
     Indication: Prostate cancer
     Dosage: UNK
     Route: 042
     Dates: start: 20230126, end: 20230126
  66. TADALAFIL [Concomitant]
     Active Substance: TADALAFIL
     Indication: Benign prostatic hyperplasia
     Dosage: UNK
     Route: 048
     Dates: start: 20230130
  67. METHYLPREDNISOLONE SODIUM SUCCINATE [Concomitant]
     Active Substance: METHYLPREDNISOLONE SODIUM SUCCINATE
     Indication: Joint swelling
     Dosage: UNK
     Route: 042
     Dates: start: 20221227, end: 20221227

REACTIONS (1)
  - Prostate cancer [Recovered/Resolved]

NARRATIVE: CASE EVENT DATE: 20221208
